FAERS Safety Report 15721719 (Version 1)
Quarter: 2018Q4

REPORT INFORMATION
  Report Type: Spontaneous
  Country: US (occurrence: US)
  Receive Date: 20181214
  Receipt Date: 20181214
  Transmission Date: 20190205
  Serious: Yes (Other)
  Sender: FDA-Public Use
  Company Number: US-ABBVIE-18S-163-2587916-00

PATIENT
  Sex: Female

DRUGS (2)
  1. LUPRON [Suspect]
     Active Substance: LEUPROLIDE ACETATE
     Indication: ENDOMETRIOSIS
     Route: 050
  2. LUPRON [Suspect]
     Active Substance: LEUPROLIDE ACETATE
     Route: 050

REACTIONS (3)
  - Pain [Unknown]
  - Hysterectomy [Unknown]
  - Drug ineffective [Unknown]
